FAERS Safety Report 10538234 (Version 1)
Quarter: 2014Q4

REPORT INFORMATION
  Report Type: Report from Study
  Country: AU (occurrence: AU)
  Receive Date: 20141023
  Receipt Date: 20141023
  Transmission Date: 20150529
  Serious: Yes (Death)
  Sender: FDA-Public Use
  Company Number: AU-CELGENE-AUS-2014103712

PATIENT
  Sex: Female

DRUGS (1)
  1. REVLIMID [Suspect]
     Active Substance: LENALIDOMIDE
     Indication: ACUTE MYELOID LEUKAEMIA
     Route: 048

REACTIONS (1)
  - Acute myeloid leukaemia [Fatal]
